FAERS Safety Report 10393506 (Version 1)
Quarter: 2014Q3

REPORT INFORMATION
  Report Type: Spontaneous
  Country: GB (occurrence: None)
  Receive Date: 20140815
  Receipt Date: 20140815
  Transmission Date: 20150326
  Serious: Yes (Congenital Anomaly, Other)
  Sender: FDA-Public Use
  Company Number: FK201403284

PATIENT
  Sex: Female

DRUGS (4)
  1. PREDNISOLONE (PREDNISOLONE) (PREDNISOLONE) [Suspect]
     Active Substance: PREDNISOLONE
     Indication: IMMUNE SYSTEM DISORDER
     Route: 064
  2. INTRALIPID [Suspect]
     Active Substance: EGG PHOSPHOLIPIDS\GLYCERIN\SOYBEAN OIL
     Indication: IMMUNE SYSTEM DISORDER
     Route: 064
  3. REPEVAX [Suspect]
     Active Substance: DIPHTHERIA AND TETANUS TOXOIDS AND ACELLULAR PERTUSSIS ADSORBED AND INACTIVATED POLIOVIRUS VACCINE
     Indication: IMMUNE SYSTEM DISORDER
     Route: 064
     Dates: start: 20140219, end: 20140219
  4. CYCLOGEST [Suspect]
     Active Substance: PROGESTERONE
     Indication: IMMUNE SYSTEM DISORDER
     Route: 064

REACTIONS (4)
  - Caesarean section [None]
  - Arrested labour [None]
  - Postpartum haemorrhage [None]
  - VIIth nerve paralysis [None]
